FAERS Safety Report 18929122 (Version 1)
Quarter: 2021Q1

REPORT INFORMATION
  Report Type: Report from Study
  Country: US (occurrence: US)
  Receive Date: 20210223
  Receipt Date: 20210223
  Transmission Date: 20210420
  Serious: No
  Sender: FDA-Public Use
  Company Number: NVSC2021US034153

PATIENT

DRUGS (1)
  1. KESIMPTA [Suspect]
     Active Substance: OFATUMUMAB
     Indication: MULTIPLE SCLEROSIS
     Dosage: UNK
     Route: 065

REACTIONS (6)
  - Tinnitus [Unknown]
  - Head discomfort [Unknown]
  - Dizziness [Unknown]
  - Pain [Unknown]
  - Paraesthesia [Unknown]
  - Muscle spasms [Unknown]
